FAERS Safety Report 5841089-2 (Version None)
Quarter: 2008Q3

REPORT INFORMATION
  Report Type: 
  Country: None (occurrence: None)
  Receive Date: 20080812
  Receipt Date: 20080801
  Transmission Date: 20090109
  Serious: Yes (Hospitalization)
  Sender: FDA-Public Use
  Company Number: US-SP-2008-02502

PATIENT
  Sex: Male

DRUGS (3)
  1. TUBERSOL [Suspect]
     Indication: TUBERCULIN TEST
     Route: 023
  2. SUSTIVA [Concomitant]
  3. COMBIVIR [Concomitant]

REACTIONS (5)
  - LEUKOCYTOSIS [None]
  - ORAL DISORDER [None]
  - PYREXIA [None]
  - RASH GENERALISED [None]
  - RASH VESICULAR [None]
